FAERS Safety Report 13012641 (Version 2)
Quarter: 2017Q1

REPORT INFORMATION
  Report Type: Report from Study
  Country: JP (occurrence: JP)
  Receive Date: 20161209
  Receipt Date: 20170213
  Transmission Date: 20170428
  Serious: Yes (Hospitalization)
  Sender: FDA-Public Use
  Company Number: JP-VIFOR (INTERNATIONAL) INC.-VIT-2016-08527

PATIENT
  Age: 42 Year
  Sex: Female
  Weight: 42 kg

DRUGS (12)
  1. CADUET NO.4 [Concomitant]
     Dosage: 4 BAN (AMLODIPINE 5 MG / ATORVASTATIN 10 MG)
     Route: 048
  2. ROCALTROL [Concomitant]
     Active Substance: CALCITRIOL
     Route: 048
  3. GASMOTIN [Concomitant]
     Active Substance: MOSAPRIDE CITRATE
  4. CALCIUM CARBONATE. [Concomitant]
     Active Substance: CALCIUM CARBONATE
     Indication: HYPERPHOSPHATAEMIA
     Route: 048
  5. VELPHORO [Suspect]
     Active Substance: FERRIC OXYHYDROXIDE
     Indication: HYPERPHOSPHATAEMIA
     Route: 048
     Dates: start: 20160723, end: 20160905
  6. BAYASPIRIN [Concomitant]
     Active Substance: ASPIRIN
     Route: 048
  7. ADALAT CC [Concomitant]
     Active Substance: NIFEDIPINE
     Route: 048
  8. OPALMON [Concomitant]
     Active Substance: LIMAPROST
     Route: 048
  9. BIO-THREE [Concomitant]
     Active Substance: HERBALS
  10. EPOETIN ALFA BS [Concomitant]
     Active Substance: ERYTHROPOIETIN
     Route: 042
  11. AZILVA [Concomitant]
     Active Substance: AZILSARTAN KAMEDOXOMIL
     Route: 048
  12. ANPLAG [Concomitant]
     Active Substance: SARPOGRELATE
     Route: 048

REACTIONS (4)
  - Hypoglycaemia [Unknown]
  - Faeces soft [Recovering/Resolving]
  - Diarrhoea [Recovering/Resolving]
  - Blood pressure increased [Unknown]

NARRATIVE: CASE EVENT DATE: 20160902
